FAERS Safety Report 6841384-4 (Version None)
Quarter: 2010Q3

REPORT INFORMATION
  Report Type: 
  Country: None (occurrence: None)
  Receive Date: 20100714
  Receipt Date: 20070727
  Transmission Date: 20110219
  Serious: No
  Sender: FDA-Public Use
  Company Number: US-PFIZER INC-2007054015

PATIENT
  Sex: Female
  Weight: 65.8 kg

DRUGS (8)
  1. CHANTIX [Suspect]
     Indication: SMOKING CESSATION THERAPY
     Route: 048
     Dates: start: 20070523
  2. LIPITOR [Concomitant]
  3. GEMFIBROZIL [Concomitant]
  4. ALBUTEROL [Concomitant]
  5. HYDROXYZINE [Concomitant]
  6. IBUPROFEN [Concomitant]
  7. ACETYLSALICYLIC ACID [Concomitant]
  8. FISH OIL [Concomitant]

REACTIONS (5)
  - ABNORMAL DREAMS [None]
  - DISTURBANCE IN ATTENTION [None]
  - DIZZINESS [None]
  - FALL [None]
  - SOMNOLENCE [None]
